FAERS Safety Report 11341915 (Version 3)
Quarter: 2015Q3

REPORT INFORMATION
  Report Type: Spontaneous
  Country: US (occurrence: US)
  Receive Date: 20150805
  Receipt Date: 20150904
  Transmission Date: 20151125
  Serious: Yes (Other)
  Sender: FDA-Public Use
  Company Number: US-GILEAD-2015-0165573

PATIENT
  Age: 72 Year
  Sex: Female

DRUGS (10)
  1. PALBOCICLIB [Concomitant]
     Active Substance: PALBOCICLIB
  2. ASCORBIC ACID. [Concomitant]
     Active Substance: ASCORBIC ACID
  3. OMEGA 3-6-9                        /01334101/ [Concomitant]
  4. RIBAVIRIN. [Suspect]
     Active Substance: RIBAVIRIN
     Indication: HEPATITIS C
     Dosage: 200 MG, UNK
     Route: 048
     Dates: start: 20150213, end: 20150508
  5. SOVALDI [Suspect]
     Active Substance: SOFOSBUVIR
     Indication: HEPATITIS C
     Dosage: 400 MG, UNK
     Route: 048
     Dates: start: 20150225, end: 20150508
  6. CALTRATE 600+D3 PLUS MINERALS      /07262701/ [Concomitant]
  7. LETROZOLE. [Concomitant]
     Active Substance: LETROZOLE
  8. ECOTRIN [Concomitant]
     Active Substance: ASPIRIN
  9. ONDANSETRON [Concomitant]
     Active Substance: ONDANSETRON
  10. CENTRUM SILVER                     /02363801/ [Concomitant]
     Active Substance: VITAMINS

REACTIONS (6)
  - Pulmonary mass [Unknown]
  - Bone pain [Unknown]
  - Chest discomfort [Unknown]
  - Breast cancer recurrent [Unknown]
  - Pulmonary mass [Unknown]
  - Mediastinal mass [Unknown]

NARRATIVE: CASE EVENT DATE: 20150621
